FAERS Safety Report 4371827-X (Version None)
Quarter: 2004Q2

REPORT INFORMATION
  Report Type: 
  Country: None (occurrence: None)
  Receive Date: 20040603
  Receipt Date: 20040603
  Transmission Date: 20050107
  Serious: Yes (Death, Hospitalization)
  Sender: FDA-Public Use
  Company Number: None

PATIENT
  Sex: Male
  Weight: 66.3612 kg

DRUGS (18)
  1. HEPARIN [Suspect]
     Indication: ATRIAL FIBRILLATION
     Dosage: CONTINUOUS INTRAVENOUS
     Route: 042
     Dates: start: 20040310, end: 20040312
  2. HEPARIN [Suspect]
     Indication: CEREBROVASCULAR ACCIDENT
     Dosage: CONTINUOUS INTRAVENOUS
     Route: 042
     Dates: start: 20040310, end: 20040312
  3. HEPARIN [Suspect]
     Indication: PROPHYLAXIS
     Dosage: CONTINUOUS INTRAVENOUS
     Route: 042
     Dates: start: 20040310, end: 20040312
  4. ACETAMINOPHEN AND CODEINE PHOSPHATE #3 [Concomitant]
  5. ALENDRONATE SODIUM [Concomitant]
  6. ALLOPURINOL [Concomitant]
  7. ALPRAZOLAM [Concomitant]
  8. AMPICILLIN [Concomitant]
  9. OSCAL [Concomitant]
  10. CITALOPRAM [Concomitant]
  11. DILTIAZEM [Concomitant]
  12. FLUTAMIDE [Concomitant]
  13. PREDNISONE [Concomitant]
  14. RANITIDINE [Concomitant]
  15. SALSASATE [Concomitant]
  16. SENNA [Concomitant]
  17. SIMVASTATIN [Concomitant]
  18. TERAZOSIN HCL [Concomitant]

REACTIONS (3)
  - DRUG INEFFECTIVE [None]
  - HEPARIN-INDUCED THROMBOCYTOPENIA [None]
  - PLATELET COUNT DECREASED [None]
